FAERS Safety Report 12173692 (Version 1)
Quarter: 2016Q1

REPORT INFORMATION
  Report Type: Spontaneous
  Country: FR (occurrence: FR)
  Receive Date: 20160314
  Receipt Date: 20160314
  Transmission Date: 20160526
  Serious: Yes (Other)
  Sender: FDA-Public Use
  Company Number: FR-AUROBINDO-AUR-APL-2016-03338

PATIENT
  Age: 36 Year
  Sex: Female
  Weight: 50 kg

DRUGS (1)
  1. TRAMADOL ARROW 200MG [Suspect]
     Active Substance: TRAMADOL
     Indication: BACK PAIN
     Dosage: 1 DF, TWO TIMES A DAY
     Route: 048
     Dates: start: 20160215, end: 20160216

REACTIONS (3)
  - Balance disorder [Recovered/Resolved]
  - Seizure [Recovered/Resolved]
  - Malaise [Recovered/Resolved]

NARRATIVE: CASE EVENT DATE: 20160216
